FAERS Safety Report 4998519-8 (Version None)
Quarter: 2006Q2

REPORT INFORMATION
  Report Type: 
  Country: None (occurrence: None)
  Receive Date: 20060508
  Receipt Date: 20060424
  Transmission Date: 20061013
  Serious: Yes (Other)
  Sender: FDA-Public Use
  Company Number: 2006043409

PATIENT
  Age: 85 Year
  Sex: Male
  Weight: 77.1115 kg

DRUGS (5)
  1. DETROL LA [Suspect]
     Indication: HYPERTONIC BLADDER
     Dosage: 4 MG (4 MG, 1 IN 1 D), ORAL
     Route: 048
     Dates: start: 20060215, end: 20060301
  2. ACETYLSALICYLIC ACID ENTERIC COATED (ACETYLSALICYLIC ACID) [Concomitant]
  3. RABEPRAZOLE SODIUM [Concomitant]
  4. TAMSULOSIN HYDROCHLORIDE (TAMSULOSIN HYDROCHLORIDE) [Concomitant]
  5. FOSAMAX [Concomitant]

REACTIONS (2)
  - ACUTE PSYCHOSIS [None]
  - HALLUCINATION [None]
